FAERS Safety Report 24658955 (Version 1)
Quarter: 2024Q4

REPORT INFORMATION
  Report Type: Spontaneous
  Country: US (occurrence: None)
  Receive Date: 20241122
  Receipt Date: 20241122
  Transmission Date: 20250115
  Serious: Yes (unspecified)
  Sender: Public
  Company Number: None

PATIENT
  Sex: 0

DRUGS (1)
  1. MIRALAX [Suspect]
     Active Substance: POLYETHYLENE GLYCOL 3350
     Indication: Constipation
     Dates: start: 20240401, end: 20241115

REACTIONS (5)
  - Product use issue [None]
  - Abnormal behaviour [None]
  - Social anxiety disorder [None]
  - Bruxism [None]
  - Aggression [None]

NARRATIVE: CASE EVENT DATE: 20240401
